FAERS Safety Report 5593455-0 (Version None)
Quarter: 2008Q1

REPORT INFORMATION
  Report Type: 
  Country: None (occurrence: None)
  Receive Date: 20080116
  Receipt Date: 20080107
  Transmission Date: 20080703
  Serious: Yes (Hospitalization, Other)
  Sender: FDA-Public Use
  Company Number: BR-BAYER-200810299LA

PATIENT
  Sex: Male
  Weight: 3 kg

DRUGS (1)
  1. YASMIN [Suspect]
     Route: 064

REACTIONS (2)
  - LUNG DISORDER [None]
  - PREMATURE BABY [None]
